FAERS Safety Report 7532867-2 (Version None)
Quarter: 2011Q2

REPORT INFORMATION
  Report Type: 
  Country: None (occurrence: None)
  Receive Date: 20110608
  Receipt Date: 20110603
  Transmission Date: 20111010
  Serious: Yes (Death, Hospitalization, Other)
  Sender: FDA-Public Use
  Company Number: US-PFIZER INC-2011041628

PATIENT
  Sex: Male

DRUGS (1)
  1. CHANTIX [Suspect]
     Indication: SMOKING CESSATION THERAPY
     Dosage: STARTER PACK
     Dates: start: 20090301, end: 20090501

REACTIONS (7)
  - INTENTIONAL SELF-INJURY [None]
  - PARANOIA [None]
  - HALLUCINATION [None]
  - DELUSION [None]
  - AGGRESSION [None]
  - PSYCHOTIC DISORDER [None]
  - COMPLETED SUICIDE [None]
